FAERS Safety Report 12296438 (Version 4)
Quarter: 2017Q3

REPORT INFORMATION
  Report Type: Spontaneous
  Country: JP (occurrence: JP)
  Receive Date: 20160422
  Receipt Date: 20170922
  Transmission Date: 20171127
  Serious: Yes (Death, Life-Threatening, Hospitalization, Other)
  Sender: FDA-Public Use
  Company Number: JP-SA-2016SA080748

PATIENT
  Age: 71 Year
  Sex: Male
  Weight: 51.7 kg

DRUGS (12)
  1. OXALIPLATIN. [Suspect]
     Active Substance: OXALIPLATIN
     Indication: RECTAL CANCER RECURRENT
     Dosage: CYCLICAL
     Route: 065
     Dates: start: 201505
  2. FLUOROURACIL. [Suspect]
     Active Substance: FLUOROURACIL
     Indication: LYMPHADENOPATHY MEDIASTINAL
     Dosage: INFUSION
     Route: 042
     Dates: start: 201505
  3. FLUOROURACIL. [Suspect]
     Active Substance: FLUOROURACIL
     Indication: LYMPHADENOPATHY MEDIASTINAL
     Dosage: INFUSION
     Route: 041
     Dates: start: 201505
  4. FOLINIC ACID [Suspect]
     Active Substance: LEUCOVORIN
     Indication: RECTAL CANCER RECURRENT
     Dosage: CYCLICAL
     Route: 065
     Dates: start: 201505
  5. OXALIPLATIN. [Suspect]
     Active Substance: OXALIPLATIN
     Indication: LYMPHADENOPATHY MEDIASTINAL
     Dosage: CYCLICAL
     Route: 065
     Dates: start: 201505
  6. FOLINIC ACID [Suspect]
     Active Substance: LEUCOVORIN
     Indication: LYMPHADENOPATHY MEDIASTINAL
     Dosage: CYCLICAL
     Route: 065
     Dates: start: 201505
  7. CALCIUM LEVOFOLINATE [Suspect]
     Active Substance: LEVOLEUCOVORIN CALCIUM
     Indication: RECTAL CANCER RECURRENT
     Route: 065
     Dates: start: 201505
  8. FLUOROURACIL. [Suspect]
     Active Substance: FLUOROURACIL
     Indication: RECTAL CANCER RECURRENT
     Dosage: INFUSION
     Route: 042
     Dates: start: 201505
  9. CALCIUM LEVOFOLINATE [Suspect]
     Active Substance: LEVOLEUCOVORIN CALCIUM
     Indication: LYMPHADENOPATHY MEDIASTINAL
     Route: 065
     Dates: start: 201505
  10. FLUOROURACIL. [Suspect]
     Active Substance: FLUOROURACIL
     Indication: RECTAL CANCER RECURRENT
     Dosage: INFUSION
     Route: 041
     Dates: start: 201505
  11. PANITUMUMAB [Suspect]
     Active Substance: PANITUMUMAB
     Indication: RECTAL CANCER RECURRENT
     Dosage: CYCLICAL
     Route: 065
     Dates: start: 201505
  12. PANITUMUMAB [Suspect]
     Active Substance: PANITUMUMAB
     Indication: LYMPHADENOPATHY MEDIASTINAL
     Dosage: CYCLICAL
     Route: 065
     Dates: start: 201505

REACTIONS (10)
  - Thrombotic thrombocytopenic purpura [Fatal]
  - Normocytic anaemia [Fatal]
  - Blood lactate dehydrogenase increased [Fatal]
  - Thrombocytopenia [Fatal]
  - Bone marrow failure [Fatal]
  - Skin plaque [Fatal]
  - Jaundice [Fatal]
  - Renal impairment [Fatal]
  - Cardio-respiratory arrest [Fatal]
  - Haematuria [Fatal]
